FAERS Safety Report 5424559-0 (Version None)
Quarter: 2007Q3

REPORT INFORMATION
  Report Type: 
  Country: None (occurrence: None)
  Receive Date: 20070726
  Receipt Date: 20070410
  Transmission Date: 20080115
  Serious: No
  Sender: FDA-Public Use
  Company Number: POMP-11018

PATIENT
  Age: 95 Week
  Sex: Female
  Weight: 14.5151 kg

DRUGS (1)
  1. MYOZYME [Suspect]
     Indication: GLYCOGEN STORAGE DISEASE TYPE II
     Dates: start: 20070328

REACTIONS (1)
  - REFLUX NEPHROPATHY [None]
